FAERS Safety Report 16618280 (Version 1)
Quarter: 2019Q3

REPORT INFORMATION
  Report Type: Report from Study
  Country: FR (occurrence: FR)
  Receive Date: 20190723
  Receipt Date: 20190723
  Transmission Date: 20191004
  Serious: Yes (Other)
  Sender: FDA-Public Use
  Company Number: FR-PFIZER INC-2019304410

PATIENT
  Age: 82 Year
  Sex: Female
  Weight: 71 kg

DRUGS (13)
  1. METHOTREXATE SODIUM. [Suspect]
     Active Substance: METHOTREXATE SODIUM
     Dosage: 1000 MG/M2, CYCLIC (DAY 1)
  2. ARACYTINE [Suspect]
     Active Substance: CYTARABINE
     Dosage: 1 G/M2 TWICE DAILY
     Dates: start: 201905
  3. PERINDOPRIL TERT-BUTYLAMINE A [Concomitant]
     Active Substance: PERINDOPRIL ERBUMINE
     Dosage: 4 MG, DAILY
  4. PRIMPERAN [Concomitant]
     Active Substance: METOCLOPRAMIDE HYDROCHLORIDE
     Indication: NAUSEA
     Dosage: 10 MG, 3X/DAY
  5. INOTUZUMAB OZOGAMICIN [Suspect]
     Active Substance: INOTUZUMAB OZOGAMICIN
     Dosage: UNK
     Dates: start: 20190211
  6. MERCAPTOPURINE. [Suspect]
     Active Substance: MERCAPTOPURINE
     Dosage: 100 MG CYCLIC (DAILY FROM D1 TO D7)
  7. BISOPROLOL EG [Concomitant]
     Active Substance: BISOPROLOL
     Dosage: 1.5 DF, DAILY
  8. DIFFU-K [Concomitant]
     Active Substance: POTASSIUM CHLORIDE
     Dosage: 600 MG, DAILY
  9. VALACYCLOVIR [Concomitant]
     Active Substance: VALACYCLOVIR HYDROCHLORIDE
     Dosage: 500 MG, DAILY
  10. VINCRISTINE SULFATE. [Suspect]
     Active Substance: VINCRISTINE SULFATE
     Dosage: 1 MG CYCLIC (DAY 1)
  11. DEXAMETHASONE. [Suspect]
     Active Substance: DEXAMETHASONE
     Dosage: 10 MG, 2X/DAY
     Dates: start: 201905
  12. RIVAROXABAN [Concomitant]
     Active Substance: RIVAROXABAN
     Dosage: 15 MG, DAILY
  13. LOXEN L P [Concomitant]
     Active Substance: NICARDIPINE HYDROCHLORIDE
     Dosage: 50 MG, 2X/DAY

REACTIONS (1)
  - Acute pulmonary oedema [Recovered/Resolved]

NARRATIVE: CASE EVENT DATE: 20190606
